FAERS Safety Report 16136934 (Version 1)
Quarter: 2019Q1

REPORT INFORMATION
  Report Type: Spontaneous
  Country: US (occurrence: US)
  Receive Date: 20190329
  Receipt Date: 20190329
  Transmission Date: 20190418
  Serious: Yes (Hospitalization, Other)
  Sender: FDA-Public Use
  Company Number: PHEH2019US012848

PATIENT

DRUGS (2)
  1. KEFLEX [Suspect]
     Active Substance: CEPHALEXIN
     Indication: URINARY TRACT INFECTION
     Dosage: 500 MG, QD
     Route: 042
     Dates: start: 20181209, end: 20181209
  2. CEFTRIAXONE. [Suspect]
     Active Substance: CEFTRIAXONE
     Indication: URINARY TRACT INFECTION
     Dosage: 1 G, QD
     Route: 042
     Dates: start: 20181209, end: 20181209

REACTIONS (4)
  - Anaphylactic reaction [Unknown]
  - Ventricular tachycardia [Unknown]
  - Pruritus [Unknown]
  - Respiratory distress [Unknown]

NARRATIVE: CASE EVENT DATE: 20181209
